FAERS Safety Report 6477418-9 (Version None)
Quarter: 2009Q4

REPORT INFORMATION
  Report Type: 
  Country: None (occurrence: None)
  Receive Date: 20091207
  Receipt Date: 20091103
  Transmission Date: 20100525
  Serious: Yes (Death)
  Sender: FDA-Public Use
  Company Number: US-SANOFI-AVENTIS-200918650US

PATIENT
  Age: 92 Year
  Sex: Male
  Weight: 59.09 kg

DRUGS (2)
  1. INSULIN GLARGINE [Suspect]
     Dosage: DOSE AS USED: UNK
     Route: 058
  2. OPTICLICK [Suspect]

REACTIONS (1)
  - DEATH [None]
